FAERS Safety Report 10640211 (Version 1)
Quarter: 2014Q4

REPORT INFORMATION
  Report Type: Spontaneous
  Country: IN (occurrence: None)
  Receive Date: 20141205
  Receipt Date: 20141205
  Transmission Date: 20150529
  Serious: Yes (Death, Other)
  Sender: FDA-Public Use
  Company Number: IN-ZYDUS-005765

PATIENT
  Age: 54 Year
  Sex: Male

DRUGS (1)
  1. METFORMIN [Suspect]
     Active Substance: METFORMIN HYDROCHLORIDE
     Indication: DIABETES MELLITUS MANAGEMENT

REACTIONS (4)
  - Jaundice [None]
  - Autoimmune haemolytic anaemia [None]
  - Haemolysis [None]
  - Fatigue [None]
